FAERS Safety Report 24305855 (Version 5)
Quarter: 2025Q3

REPORT INFORMATION
  Report Type: Spontaneous
  Country: US (occurrence: US)
  Receive Date: 20240911
  Receipt Date: 20250816
  Transmission Date: 20251021
  Serious: Yes (Other)
  Sender: ALEXION PHARMACEUTICALS
  Company Number: 2024A200458

PATIENT
  Sex: Female

DRUGS (1)
  1. SAPHNELO [Suspect]
     Active Substance: ANIFROLUMAB-FNIA

REACTIONS (15)
  - Hypersensitivity [Unknown]
  - Asthma [Unknown]
  - Upper respiratory tract infection [Unknown]
  - Hot flush [Unknown]
  - Fatigue [Unknown]
  - Condition aggravated [Unknown]
  - Fatigue [Unknown]
  - Sjogren^s syndrome [Unknown]
  - Dehydration [Unknown]
  - Decreased appetite [Unknown]
  - Weight decreased [Unknown]
  - COVID-19 [Unknown]
  - Taste disorder [Unknown]
  - Bronchitis [Unknown]
  - Drug effect less than expected [Unknown]
